FAERS Safety Report 6491724-3 (Version None)
Quarter: 2009Q4

REPORT INFORMATION
  Report Type: 
  Country: None (occurrence: None)
  Receive Date: 20091208
  Receipt Date: 20091110
  Transmission Date: 20100525
  Serious: No
  Sender: FDA-Public Use
  Company Number: 2006JP000948

PATIENT
  Age: 9 Year
  Sex: Female

DRUGS (1)
  1. PROTOPIC [Suspect]
     Dosage: 0.03%, TOPICAL
     Route: 061

REACTIONS (3)
  - ACNE [None]
  - HERPES SIMPLEX [None]
  - SKIN PAPILLOMA [None]
